FAERS Safety Report 11442667 (Version 1)
Quarter: 2015Q3

REPORT INFORMATION
  Report Type: Spontaneous
  Country: US (occurrence: US)
  Receive Date: 20150901
  Receipt Date: 20150901
  Transmission Date: 20151125
  Serious: No
  Sender: FDA-Public Use
  Company Number: US-GLAXOSMITHKLINE-US2015GSK124115

PATIENT
  Age: 62 Year
  Sex: Male
  Weight: 66 kg

DRUGS (6)
  1. VOTRIENT [Suspect]
     Active Substance: PAZOPANIB HYDROCHLORIDE
     Indication: BLADDER CANCER
     Dosage: 800 MG, QD
     Route: 048
     Dates: start: 20150226
  2. MORPHINE [Concomitant]
     Active Substance: MORPHINE
  3. ENOXAPARIN [Concomitant]
     Active Substance: ENOXAPARIN
  4. VOTRIENT [Suspect]
     Active Substance: PAZOPANIB HYDROCHLORIDE
     Dosage: 600 MG, QD
     Route: 048
  5. FONDAPARINUX [Concomitant]
     Active Substance: FONDAPARINUX
  6. TAMSULOSIN [Concomitant]
     Active Substance: TAMSULOSIN

REACTIONS (4)
  - Abdominal discomfort [Recovering/Resolving]
  - Decreased appetite [Recovering/Resolving]
  - Nausea [Recovering/Resolving]
  - Vomiting [Recovering/Resolving]

NARRATIVE: CASE EVENT DATE: 20150305
